FAERS Safety Report 23710796 (Version 3)
Quarter: 2024Q4

REPORT INFORMATION
  Report Type: Spontaneous
  Country: FR (occurrence: FR)
  Receive Date: 20240405
  Receipt Date: 20241021
  Transmission Date: 20250114
  Serious: Yes (Death)
  Sender: ROCHE
  Company Number: FR-ROCHE-3538038

PATIENT
  Age: 73 Year
  Sex: Male

DRUGS (4)
  1. RITUXIMAB [Suspect]
     Active Substance: RITUXIMAB
     Indication: Central nervous system lymphoma
     Route: 065
  2. RITUXIMAB [Suspect]
     Active Substance: RITUXIMAB
     Indication: Diffuse large B-cell lymphoma
  3. LENALIDOMIDE [Suspect]
     Active Substance: LENALIDOMIDE
     Indication: Central nervous system lymphoma
     Route: 065
  4. METHOTREXATE [Concomitant]
     Active Substance: METHOTREXATE

REACTIONS (3)
  - Cardio-respiratory arrest [Fatal]
  - Disease progression [Fatal]
  - Off label use [Fatal]
